FAERS Safety Report 25990586 (Version 1)
Quarter: 2025Q4

REPORT INFORMATION
  Report Type: Report from Study
  Country: US (occurrence: US)
  Receive Date: 20251103
  Receipt Date: 20251103
  Transmission Date: 20260118
  Serious: Yes (Hospitalization)
  Sender: GRIFOLS
  Company Number: US-IGSA-BIG0039221

PATIENT
  Sex: Male
  Weight: 81.6 kg

DRUGS (1)
  1. PROLASTIN-C LIQUID [Suspect]
     Active Substance: .ALPHA.1-PROTEINASE INHIBITOR HUMAN
     Indication: Alpha-1 antitrypsin deficiency
     Dosage: 5150 MILLIGRAM, Q.WK.
     Route: 042

REACTIONS (2)
  - Staphylococcal infection [Unknown]
  - Weight decreased [Unknown]
